FAERS Safety Report 5801323-1 (Version None)
Quarter: 2008Q3

REPORT INFORMATION
  Report Type: 
  Country: None (occurrence: None)
  Receive Date: 20080707
  Receipt Date: 20080624
  Transmission Date: 20090109
  Serious: Yes (Hospitalization)
  Sender: FDA-Public Use
  Company Number: JP-JNJFOC-20080503208

PATIENT
  Sex: Female
  Weight: 38 kg

DRUGS (12)
  1. RISPERDAL [Suspect]
     Route: 048
  2. RISPERDAL [Suspect]
     Indication: SENILE PSYCHOSIS
     Route: 048
  3. PHENOBARBITAL TAB [Suspect]
     Indication: DRUG USE FOR UNKNOWN INDICATION
  4. VEGETAMIN B [Concomitant]
     Indication: SENILE PSYCHOSIS
     Route: 048
  5. GRAMALIL [Concomitant]
     Indication: SENILE PSYCHOSIS
     Route: 048
  6. ARICEPT D [Concomitant]
     Indication: DEMENTIA
     Route: 048
  7. MEVALOTIN [Concomitant]
     Indication: HYPERLIPIDAEMIA
     Route: 048
  8. NORVASC [Concomitant]
     Indication: HYPERTENSION
     Route: 048
  9. DOGMATYL [Concomitant]
     Indication: SENILE PSYCHOSIS
  10. BROMVALERYLUREA [Concomitant]
     Indication: SENILE PSYCHOSIS
     Route: 048
  11. ETIZOLAM [Concomitant]
     Indication: SENILE PSYCHOSIS
     Route: 048
  12. ZOLPIDEM TARTRATE [Concomitant]
     Indication: SENILE PSYCHOSIS
     Route: 048

REACTIONS (4)
  - CHOLESTASIS [None]
  - DEPRESSED LEVEL OF CONSCIOUSNESS [None]
  - HEPATIC FUNCTION ABNORMAL [None]
  - JAUNDICE [None]
